FAERS Safety Report 5503762-5 (Version None)
Quarter: 2007Q4

REPORT INFORMATION
  Report Type: 
  Country: None (occurrence: None)
  Receive Date: 20071030
  Receipt Date: 20071030
  Transmission Date: 20080405
  Serious: Yes (Other)
  Sender: FDA-Public Use
  Company Number: None

PATIENT
  Age: 58 Year
  Sex: Female
  Weight: 52.1637 kg

DRUGS (2)
  1. ZICAM NASAL SPRAY MATRIXX [Suspect]
     Indication: NASOPHARYNGITIS
     Dosage: 1 SHOT IN EACH NOSTRIL  TWICE  NASAL
     Route: 045
     Dates: start: 20071019, end: 20071020
  2. ZICAM NASAL SPRAY MATRIXX [Suspect]
     Indication: PROPHYLAXIS
     Dosage: 1 SHOT IN EACH NOSTRIL  TWICE  NASAL
     Route: 045
     Dates: start: 20071019, end: 20071020

REACTIONS (3)
  - AGEUSIA [None]
  - ANOSMIA [None]
  - NASAL DISCOMFORT [None]
